FAERS Safety Report 4684346-8 (Version None)
Quarter: 2005Q2

REPORT INFORMATION
  Report Type: 
  Country: None (occurrence: None)
  Receive Date: 20050531
  Receipt Date: 20050321
  Transmission Date: 20051028
  Serious: Yes (Hospitalization, Other)
  Sender: FDA-Public Use
  Company Number: USA041183559

PATIENT
  Age: 39 Year
  Sex: Male
  Weight: 126 kg

DRUGS (1)
  1. ZYPREXA [Suspect]
     Indication: MOOD ALTERED
     Dosage: 10 MG/1 DAY
     Dates: start: 20031201, end: 20040201

REACTIONS (1)
  - DIABETES MELLITUS NON-INSULIN-DEPENDENT [None]
